FAERS Safety Report 19494765 (Version 3)
Quarter: 2021Q3

REPORT INFORMATION
  Report Type: Spontaneous
  Country: PT (occurrence: PT)
  Receive Date: 20210706
  Receipt Date: 20210809
  Transmission Date: 20211014
  Serious: Yes (Life-Threatening, Hospitalization, Disabling, Other)
  Sender: FDA-Public Use
  Company Number: PT-AUROBINDO-AUR-APL-2021-027770

PATIENT
  Age: 47 Year
  Sex: Female

DRUGS (10)
  1. ESCITALOPRAM [Interacting]
     Active Substance: ESCITALOPRAM OXALATE
     Indication: DEPRESSIVE SYMPTOM
     Dosage: 20 MILLIGRAM, ONCE A DAY
     Route: 065
  2. LITHIUM. [Interacting]
     Active Substance: LITHIUM
     Dosage: 400 MILLIGRAM AT AN INTERVAL OF 0.5 DAY
     Route: 065
  3. BUSPIRONE [Suspect]
     Active Substance: BUSPIRONE HYDROCHLORIDE
     Indication: BIPOLAR I DISORDER
     Dosage: 10 MILLIGRAM, TWO TIMES A DAY
     Route: 065
  4. BUSPIRONE [Interacting]
     Active Substance: BUSPIRONE HYDROCHLORIDE
     Indication: DEPRESSIVE SYMPTOM
     Dosage: 10 MILLIGRAM AT AN INTERVAL OF 0.5 DAY
     Route: 065
  5. DIAZEPAM. [Interacting]
     Active Substance: DIAZEPAM
     Indication: SEROTONIN SYNDROME
     Dosage: 10 MILLIGRAM, PRN
     Route: 065
  6. ESCITALOPRAM [Interacting]
     Active Substance: ESCITALOPRAM OXALATE
     Indication: BIPOLAR I DISORDER
     Dosage: 30 MILLIGRAM, ONCE A DAY
     Route: 065
  7. LITHIUM. [Interacting]
     Active Substance: LITHIUM
     Indication: BIPOLAR I DISORDER
     Dosage: 400 MILLIGRAM, TWO TIMES A DAY
     Route: 065
  8. DIAZEPAM. [Concomitant]
     Active Substance: DIAZEPAM
     Indication: BIPOLAR I DISORDER
  9. DIAZEPAM. [Interacting]
     Active Substance: DIAZEPAM
     Indication: BIPOLAR I DISORDER
     Dosage: 10 MILLIGRAM, PRN, AT NIGHT
     Route: 065
  10. DIAZEPAM. [Concomitant]
     Active Substance: DIAZEPAM
     Indication: PRODUCT USED FOR UNKNOWN INDICATION
     Dosage: 10 MILLIGRAM, AS NECESSARY(10 MG AT NIGHT IF NEEDED )
     Route: 065

REACTIONS (12)
  - Movement disorder [Recovered/Resolved]
  - Therapeutic product effect incomplete [Unknown]
  - Ill-defined disorder [Recovered/Resolved]
  - Clonus [Recovered/Resolved]
  - Dyskinesia [Recovered/Resolved]
  - Overdose [Unknown]
  - Off label use [Recovered/Resolved]
  - Drug interaction [Recovered/Resolved]
  - Agitation [Recovered/Resolved]
  - Therapy partial responder [Recovered/Resolved]
  - Serotonin syndrome [Recovered/Resolved]
  - Loss of personal independence in daily activities [Recovered/Resolved]
